FAERS Safety Report 4611753-1 (Version None)
Quarter: 2005Q2

REPORT INFORMATION
  Report Type: 
  Country: None (occurrence: None)
  Receive Date: 20050308
  Receipt Date: 20041209
  Transmission Date: 20051028
  Serious: Yes (Other)
  Sender: FDA-Public Use
  Company Number: 2004UW25125

PATIENT

DRUGS (2)
  1. CRESTOR [Suspect]
  2. ZETIA [Suspect]

REACTIONS (2)
  - ARTHRALGIA [None]
  - FINGER DEFORMITY [None]
